FAERS Safety Report 21397085 (Version 1)
Quarter: 2022Q3

REPORT INFORMATION
  Report Type: Spontaneous
  Country: ES (occurrence: ES)
  Receive Date: 20220930
  Receipt Date: 20220930
  Transmission Date: 20221027
  Serious: Yes (Hospitalization, Other)
  Sender: FDA-Public Use
  Company Number: None

PATIENT
  Age: 78 Year
  Sex: Female

DRUGS (8)
  1. METFORMIN HYDROCHLORIDE [Suspect]
     Active Substance: METFORMIN HYDROCHLORIDE
     Indication: Type 2 diabetes mellitus
     Route: 048
     Dates: start: 20210906, end: 20210917
  2. QUETIAPINE FUMARATE [Concomitant]
     Active Substance: QUETIAPINE FUMARATE
     Indication: Cognitive disorder
     Route: 048
     Dates: start: 20191023
  3. OMEPRAZOLE [Concomitant]
     Active Substance: OMEPRAZOLE
     Indication: Cirrhosis alcoholic
     Dosage: A-DE
     Route: 048
     Dates: start: 20120920
  4. FOLIC ACID [Concomitant]
     Active Substance: FOLIC ACID
     Indication: Cirrhosis alcoholic
     Dosage: DE
     Route: 048
     Dates: start: 20191024
  5. RIFAXIMIN [Concomitant]
     Active Substance: RIFAXIMIN
     Indication: Encephalopathy
     Route: 048
     Dates: start: 20191023
  6. PARACETAMOL CINFA [Concomitant]
     Indication: Fracture
     Route: 048
     Dates: start: 20191118
  7. ALDACTONE [Concomitant]
     Active Substance: SPIRONOLACTONE
     Indication: Ascites
     Route: 048
     Dates: start: 20191115
  8. PROPRANOLOL KERN PHARMA [Concomitant]
     Indication: Product used for unknown indication
     Dosage: DECODE
     Route: 048
     Dates: start: 20191024

REACTIONS (2)
  - Chronic kidney disease [Recovered/Resolved]
  - Diarrhoea [Recovered/Resolved]

NARRATIVE: CASE EVENT DATE: 20210917
